FAERS Safety Report 7384739-4 (Version None)
Quarter: 2011Q1

REPORT INFORMATION
  Report Type: 
  Country: None (occurrence: None)
  Receive Date: 20110330
  Receipt Date: 20110318
  Transmission Date: 20110831
  Serious: Yes (Hospitalization)
  Sender: FDA-Public Use
  Company Number: PHHY2011FR22926

PATIENT
  Age: 82 Year
  Sex: Female

DRUGS (1)
  1. EXELON [Suspect]
     Dosage: 4.6 MG, DAILY
     Route: 062
     Dates: start: 20110126, end: 20110203

REACTIONS (9)
  - GAMMA-GLUTAMYLTRANSFERASE INCREASED [None]
  - INCREASED UPPER AIRWAY SECRETION [None]
  - BLOOD ALKALINE PHOSPHATASE INCREASED [None]
  - VOMITING [None]
  - ASPARTATE AMINOTRANSFERASE INCREASED [None]
  - ALANINE AMINOTRANSFERASE INCREASED [None]
  - ABDOMINAL DISCOMFORT [None]
  - LIPASE INCREASED [None]
  - NAUSEA [None]
